FAERS Safety Report 5355499-3 (Version None)
Quarter: 2007Q2

REPORT INFORMATION
  Report Type: 
  Country: None (occurrence: None)
  Receive Date: 20070530
  Receipt Date: 20061005
  Transmission Date: 20071010
  Serious: Yes (Hospitalization)
  Sender: FDA-Public Use
  Company Number: US200609001836

PATIENT
  Age: 27 Year
  Sex: Male
  Weight: 108.4 kg

DRUGS (4)
  1. ZYPREXA [Suspect]
     Dosage: 30 MG
     Dates: start: 19990101, end: 20010101
  2. QUETIAPINE FUMARATE [Concomitant]
  3. RISPERIDONE [Concomitant]
  4. HALOPERIDOL [Concomitant]

REACTIONS (1)
  - DIABETES MELLITUS [None]
